FAERS Safety Report 12244036 (Version 2)
Quarter: 2016Q2

REPORT INFORMATION
  Report Type: Spontaneous
  Country: US (occurrence: US)
  Receive Date: 20160406
  Receipt Date: 20160627
  Transmission Date: 20160815
  Serious: No
  Sender: FDA-Public Use
  Company Number: GXBR2016US001084

PATIENT
  Sex: Male

DRUGS (2)
  1. BENZODIAZEPINES [Concomitant]
     Active Substance: BENZODIAZEPINE
     Dosage: UNK DF, UNK
  2. ZOLPIDEM TARTRATE. [Suspect]
     Active Substance: ZOLPIDEM TARTRATE
     Indication: SLEEP DISORDER
     Dosage: 10 MG, QD
     Route: 048
     Dates: start: 20160310

REACTIONS (1)
  - Drug ineffective [Unknown]
